FAERS Safety Report 23852722 (Version 2)
Quarter: 2024Q2

REPORT INFORMATION
  Report Type: Spontaneous
  Country: AU (occurrence: AU)
  Receive Date: 20240514
  Receipt Date: 20240603
  Transmission Date: 20240716
  Serious: Yes (Hospitalization, Other)
  Sender: FDA-Public Use
  Company Number: AU-Accord-423826

PATIENT
  Age: 43 Year
  Sex: Female

DRUGS (6)
  1. AMLODIPINE BESYLATE\OLMESARTAN MEDOXOMIL [Suspect]
     Active Substance: AMLODIPINE BESYLATE\OLMESARTAN MEDOXOMIL
     Indication: Hypertension
     Dosage: 40/5 MG
  2. CHOLECALCIFEROL [Concomitant]
     Active Substance: CHOLECALCIFEROL
  3. LOPERAMIDE [Concomitant]
     Active Substance: LOPERAMIDE
     Dosage: UP TO FOUR TIMES A WEEK ON AN AS-NEEDED BASIS
  4. BUDESONIDE\FORMOTEROL FUMARATE [Concomitant]
     Active Substance: BUDESONIDE\FORMOTEROL FUMARATE
  5. ACETAMINOPHEN [Concomitant]
     Active Substance: ACETAMINOPHEN
  6. AMLODIPINE BESYLATE\OLMESARTAN MEDOXOMIL [Suspect]
     Active Substance: AMLODIPINE BESYLATE\OLMESARTAN MEDOXOMIL
     Indication: Hypertension
     Dosage: 25/5 MG, TAKING FOR 2 YEARS

REACTIONS (4)
  - Ischaemic hepatitis [Recovering/Resolving]
  - Acute kidney injury [Unknown]
  - Sprue-like enteropathy [Recovering/Resolving]
  - Liver injury [Recovering/Resolving]
